FAERS Safety Report 5729001-8 (Version None)
Quarter: 2008Q2

REPORT INFORMATION
  Report Type: 
  Country: None (occurrence: None)
  Receive Date: 20080505
  Receipt Date: 20080505
  Transmission Date: 20081010
  Serious: Yes (Hospitalization)
  Sender: FDA-Public Use
  Company Number: None

PATIENT
  Age: 18 Year
  Sex: Female
  Weight: 86.1834 kg

DRUGS (2)
  1. MAGNEVIST [Suspect]
     Indication: FALL
     Dosage: 1 CC PER 10 LBS ONCE FOREARM 4:00 PM
     Dates: start: 20070808
  2. MAGNEVIST [Suspect]
     Indication: NUCLEAR MAGNETIC RESONANCE IMAGING BRAIN
     Dosage: 1 CC PER 10 LBS ONCE FOREARM 4:00 PM
     Dates: start: 20070808

REACTIONS (4)
  - CONTRAST MEDIA REACTION [None]
  - FEELING ABNORMAL [None]
  - STRESS [None]
  - TRISMUS [None]
